FAERS Safety Report 7279901-5 (Version None)
Quarter: 2011Q1

REPORT INFORMATION
  Report Type: 
  Country: None (occurrence: None)
  Receive Date: 20110208
  Receipt Date: 20101124
  Transmission Date: 20110831
  Serious: Yes (Other)
  Sender: FDA-Public Use
  Company Number: US-BAYER-200716899NA

PATIENT
  Sex: Female
  Weight: 84 kg

DRUGS (1)
  1. MIRENA [Suspect]
     Indication: CONTRACEPTION
     Dosage: 20 MCG/DAY CONTINUOUS
     Route: 015
     Dates: start: 20070423, end: 20071114

REACTIONS (17)
  - ANXIETY [None]
  - VISION BLURRED [None]
  - PAIN IN EXTREMITY [None]
  - FEAR [None]
  - BLINDNESS [None]
  - HYPOAESTHESIA [None]
  - EAR DISCOMFORT [None]
  - INTRAOCULAR PRESSURE INCREASED [None]
  - HEADACHE [None]
  - PARAESTHESIA [None]
  - MERALGIA PARAESTHETICA [None]
  - INJURY [None]
  - EMOTIONAL DISTRESS [None]
  - PAPILLOEDEMA [None]
  - VISUAL IMPAIRMENT [None]
  - PAIN [None]
  - BENIGN INTRACRANIAL HYPERTENSION [None]
